FAERS Safety Report 4308733-2 (Version None)
Quarter: 2004Q1

REPORT INFORMATION
  Report Type: 
  Country: None (occurrence: None)
  Receive Date: 20040227
  Receipt Date: 20000912
  Transmission Date: 20041129
  Serious: Yes (Hospitalization)
  Sender: FDA-Public Use
  Company Number: KII-2000-0007477

PATIENT
  Sex: Male

DRUGS (1)
  1. OXYCONTIN [Suspect]

REACTIONS (2)
  - INTENTIONAL SELF-INJURY [None]
  - SUICIDE ATTEMPT [None]
